FAERS Safety Report 21347522 (Version 4)
Quarter: 2024Q1

REPORT INFORMATION
  Report Type: Spontaneous
  Country: JP (occurrence: JP)
  Receive Date: 20220919
  Receipt Date: 20240220
  Transmission Date: 20240410
  Serious: Yes (Hospitalization)
  Sender: FDA-Public Use
  Company Number: JP-NOVOPROD-957632

PATIENT
  Age: 62 Year
  Sex: Female

DRUGS (9)
  1. REPAGLINIDE [Suspect]
     Active Substance: REPAGLINIDE
     Indication: Type 2 diabetes mellitus
     Dosage: 0.25 MG, QD(BEFORE NOON)
     Route: 048
     Dates: start: 20170526
  2. REPAGLINIDE [Suspect]
     Active Substance: REPAGLINIDE
     Dosage: 0.75 MG
  3. REPAGLINIDE [Suspect]
     Active Substance: REPAGLINIDE
     Dosage: 0.25 MG, TID
     Route: 048
     Dates: start: 20190314
  4. REPAGLINIDE [Suspect]
     Active Substance: REPAGLINIDE
     Dosage: 0.25 MG, BID
     Route: 048
     Dates: start: 20180508
  5. IMEGLIMIN HYDROCHLORIDE [Suspect]
     Active Substance: IMEGLIMIN HYDROCHLORIDE
     Indication: Type 2 diabetes mellitus
     Dosage: UNK
     Route: 048
     Dates: start: 20211214
  6. SEMAGLUTIDE [Suspect]
     Active Substance: SEMAGLUTIDE
     Indication: Type 2 diabetes mellitus
     Dosage: 7 MG, QD
     Dates: start: 20210610, end: 20211214
  7. SITAGLIPTIN PHOSPHATE [Suspect]
     Active Substance: SITAGLIPTIN PHOSPHATE
     Indication: Type 2 diabetes mellitus
     Dosage: 25 MG, QD
     Route: 048
     Dates: start: 20160518, end: 20210311
  8. DAPAGLIFLOZIN [Suspect]
     Active Substance: DAPAGLIFLOZIN
     Dosage: UNK
     Route: 048
     Dates: start: 20210311, end: 20210610
  9. DAPAGLIFLOZIN [Suspect]
     Active Substance: DAPAGLIFLOZIN
     Indication: Type 2 diabetes mellitus
     Dosage: 5 MG, QD
     Route: 048
     Dates: start: 202012

REACTIONS (5)
  - Cerebral haemorrhage [Unknown]
  - Liver disorder [Unknown]
  - Blood glucose decreased [Unknown]
  - Hypoglycaemia [Unknown]
  - Hyperglycaemia [Unknown]

NARRATIVE: CASE EVENT DATE: 20211214
